FAERS Safety Report 24795198 (Version 1)
Quarter: 2024Q4

REPORT INFORMATION
  Report Type: Spontaneous
  Country: US (occurrence: US)
  Receive Date: 20241231
  Receipt Date: 20241231
  Transmission Date: 20250115
  Serious: No
  Sender: TAIHO ONCOLOGY INC
  Company Number: US-TAIHOP-2024-010634

PATIENT
  Sex: Female

DRUGS (1)
  1. LYTGOBI [Suspect]
     Active Substance: FUTIBATINIB
     Indication: Anal squamous cell carcinoma
     Dosage: START DATE TO BE EXPECTED: 20/DEC/2024
     Route: 048

REACTIONS (1)
  - Product prescribing issue [Unknown]
